FAERS Safety Report 7152308-7 (Version None)
Quarter: 2010Q4

REPORT INFORMATION
  Report Type: 
  Country: None (occurrence: None)
  Receive Date: 20101209
  Receipt Date: 20101209
  Transmission Date: 20110411
  Serious: Yes (Disabling)
  Sender: FDA-Public Use
  Company Number: None

PATIENT
  Sex: Female
  Weight: 58.0604 kg

DRUGS (1)
  1. KENALOG [Suspect]
     Indication: URTICARIA
     Dosage: 60 MG (1.5 ML) ONCE 030
     Dates: start: 20100626

REACTIONS (4)
  - INJECTION SITE ATROPHY [None]
  - INJECTION SITE DISCOLOURATION [None]
  - INJECTION SITE SCAR [None]
  - SKIN EXFOLIATION [None]
